FAERS Safety Report 22277805 (Version 1)
Quarter: 2023Q2

REPORT INFORMATION
  Report Type: Report from Study
  Country: JP (occurrence: JP)
  Receive Date: 20230503
  Receipt Date: 20230503
  Transmission Date: 20230721
  Serious: Yes (Hospitalization)
  Sender: FDA-Public Use
  Company Number: JP-INSMED, INC.-2022-03410-JP

PATIENT
  Age: 74 Year
  Sex: Female

DRUGS (1)
  1. ARIKAYCE [Suspect]
     Active Substance: AMIKACIN
     Indication: Product used for unknown indication
     Dosage: UNK
     Route: 055
     Dates: start: 20221125, end: 202301

REACTIONS (9)
  - Hospitalisation [Unknown]
  - Tongue coated [Recovered/Resolved]
  - Choking [Recovered/Resolved]
  - Hypersensitivity [Unknown]
  - Rheumatic disorder [Unknown]
  - Tongue discolouration [Recovered/Resolved]
  - Sputum increased [Unknown]
  - Productive cough [Unknown]
  - Cough [Unknown]

NARRATIVE: CASE EVENT DATE: 20220101
